FAERS Safety Report 5837684-7 (Version None)
Quarter: 2008Q3

REPORT INFORMATION
  Report Type: 
  Country: None (occurrence: None)
  Receive Date: 20080731
  Receipt Date: 20080612
  Transmission Date: 20090109
  Serious: No
  Sender: FDA-Public Use
  Company Number: US200806003194

PATIENT
  Age: 48 Year
  Sex: Male

DRUGS (2)
  1. BYETTA [Suspect]
     Indication: INSULIN RESISTANT DIABETES
     Dosage: 5 UG, OTHER, SUBCUTANEOUS
     Route: 058
     Dates: start: 20070101, end: 20070101
  2. EXENATIDE 5MCG PEN, DISPOSABLE DEVICE (EXENATIDE PEN (5MCG)) PEN,DISPO [Concomitant]

REACTIONS (6)
  - ASTHENIA [None]
  - FEELING ABNORMAL [None]
  - MALAISE [None]
  - PARAESTHESIA [None]
  - SOMNOLENCE [None]
  - TREMOR [None]
